FAERS Safety Report 18985968 (Version 1)
Quarter: 2021Q1

REPORT INFORMATION
  Report Type: Spontaneous
  Country: US (occurrence: US)
  Receive Date: 20210308
  Receipt Date: 20210308
  Transmission Date: 20210420
  Serious: No
  Sender: FDA-Public Use
  Company Number: None

PATIENT
  Age: 38 Year
  Sex: Female
  Weight: 60.75 kg

DRUGS (7)
  1. MAGNESIUM [Concomitant]
     Active Substance: MAGNESIUM
  2. MELATONIN [Concomitant]
     Active Substance: MELATONIN
  3. LEXAPRO [Concomitant]
     Active Substance: ESCITALOPRAM OXALATE
  4. TRAZADONE 50MG [Concomitant]
     Active Substance: TRAZODONE HYDROCHLORIDE
  5. BIRTH CONTROL [Concomitant]
     Active Substance: UNSPECIFIED INGREDIENT
  6. SINGULAIR [Suspect]
     Active Substance: MONTELUKAST SODIUM
     Indication: HYPERSENSITIVITY
     Dosage: ?          QUANTITY:1 TABLET(S);?
     Route: 048
     Dates: start: 20210101, end: 20210301
  7. MULTI?VITAMENS [Concomitant]
     Active Substance: VITAMINS

REACTIONS (3)
  - Insomnia [None]
  - Panic attack [None]
  - Palpitations [None]

NARRATIVE: CASE EVENT DATE: 20210301
